FAERS Safety Report 24881210 (Version 1)
Quarter: 2025Q1

REPORT INFORMATION
  Report Type: Spontaneous
  Country: MX (occurrence: MX)
  Receive Date: 20250124
  Receipt Date: 20250124
  Transmission Date: 20250408
  Serious: Yes (Hospitalization)
  Sender: NOVO NORDISK
  Company Number: MX-NOVOPROD-1329015

PATIENT
  Age: 42 Year
  Sex: Female
  Weight: 100 kg

DRUGS (4)
  1. SAXENDA [Suspect]
     Active Substance: LIRAGLUTIDE
     Dates: start: 20241110
  2. SAXENDA [Suspect]
     Active Substance: LIRAGLUTIDE
     Dates: end: 20241129
  3. SAXENDA [Suspect]
     Active Substance: LIRAGLUTIDE
  4. SAXENDA [Suspect]
     Active Substance: LIRAGLUTIDE
     Indication: Hepatic steatosis
     Dates: start: 202410

REACTIONS (7)
  - Dengue fever [Recovered/Resolved]
  - Abdominal pain upper [Recovered/Resolved]
  - Abdominal distension [Recovered/Resolved]
  - Vomiting [Recovered/Resolved]
  - Constipation [Recovered/Resolved]
  - Diarrhoea [Recovered/Resolved]
  - Product use in unapproved indication [Unknown]

NARRATIVE: CASE EVENT DATE: 20241001
